FAERS Safety Report 13855829 (Version 1)
Quarter: 2017Q3

REPORT INFORMATION
  Report Type: Spontaneous
  Country: US (occurrence: US)
  Receive Date: 20170810
  Receipt Date: 20170810
  Transmission Date: 20171127
  Serious: No
  Sender: FDA-Public Use
  Company Number: US-VIFOR (INTERNATIONAL) INC.-VIT-2017-00728

PATIENT
  Sex: Male

DRUGS (3)
  1. VELTASSA [Suspect]
     Active Substance: PATIROMER
     Indication: PRODUCT USED FOR UNKNOWN INDICATION
     Route: 065
  2. VELTASSA [Suspect]
     Active Substance: PATIROMER
     Route: 065
  3. VELTASSA [Suspect]
     Active Substance: PATIROMER
     Route: 065

REACTIONS (1)
  - Inappropriate schedule of drug administration [Unknown]
